FAERS Safety Report 9284489 (Version 2)
Quarter: 2013Q2

REPORT INFORMATION
  Report Type: Report from Study
  Country: BR (occurrence: BR)
  Receive Date: 20130510
  Receipt Date: 20130527
  Transmission Date: 20140414
  Serious: Yes (Hospitalization, Other)
  Sender: FDA-Public Use
  Company Number: PHHY2013BR046626

PATIENT
  Age: 71 Year
  Sex: Female
  Weight: 58 kg

DRUGS (11)
  1. GALVUS [Suspect]
     Dosage: 50 MG, DAILY
  2. DIOVAN [Suspect]
     Dosage: 2 DF (160 MG EACH), DAILY
     Route: 048
     Dates: start: 201302
  3. CILOSTAZOL [Concomitant]
     Indication: PERIPHERAL VASCULAR DISORDER
     Dosage: 200 MG, DAILY
     Route: 048
  4. MONOCORDIL [Concomitant]
     Indication: CARDIAC DISORDER
     Dosage: 80 MG, DAILY
     Route: 048
     Dates: start: 2011
  5. SELOZOK [Concomitant]
     Dosage: 50 MG, QHS
     Route: 048
  6. PURAN T4 [Concomitant]
     Indication: THYROID DISORDER
     Dosage: 65 MG, (IN FASTING)
     Route: 048
  7. VALSARTAN [Concomitant]
     Dosage: 100 MG, DAILY
     Route: 048
     Dates: start: 201302
  8. SIMVASTATIN [Concomitant]
     Dosage: 40 MG, DAILY
     Route: 048
  9. OMEPRAZOLE [Concomitant]
     Indication: ABDOMINAL DISCOMFORT
     Dosage: 2 DF, DAILY
     Route: 048
  10. ACETYLSALICYLIC ACID [Concomitant]
     Indication: ANTICOAGULANT THERAPY
     Dosage: 1 DF, DAILY
     Route: 048
  11. INSULIN [Concomitant]
     Indication: DIABETES MELLITUS
     Dosage: UNK UKN, UNK
     Route: 058

REACTIONS (2)
  - Urinary tract infection [Recovered/Resolved]
  - Diabetes mellitus inadequate control [Recovered/Resolved]
